FAERS Safety Report 5774213-0 (Version None)
Quarter: 2008Q2

REPORT INFORMATION
  Report Type: 
  Country: None (occurrence: None)
  Receive Date: 20080616
  Receipt Date: 20080603
  Transmission Date: 20081010
  Serious: Yes (Death)
  Sender: FDA-Public Use
  Company Number: FR-ROCHE-568294

PATIENT
  Age: 17 Year
  Sex: Female

DRUGS (7)
  1. RIVOTRIL [Suspect]
     Indication: DELUSION
     Dosage: DOSAGE REGIMEN REPORTED AS: 60 DROPS.
     Route: 048
     Dates: start: 20051207
  2. ZOVIRAX [Suspect]
     Indication: DRUG USE FOR UNKNOWN INDICATION
     Route: 042
     Dates: start: 20051213, end: 20051214
  3. ATARAX [Suspect]
     Indication: NEUROLEPTIC MALIGNANT SYNDROME
     Route: 042
     Dates: start: 20051212
  4. TRANXENE [Suspect]
     Indication: NEUROLEPTIC MALIGNANT SYNDROME
     Route: 042
     Dates: start: 20051213
  5. DEPAKENE [Suspect]
     Indication: CONVULSION
     Route: 048
     Dates: start: 20051214
  6. TERCIAN [Suspect]
     Indication: DELUSION
     Route: 048
     Dates: start: 20051206, end: 20051212
  7. ZYPREXA [Suspect]
     Indication: DELUSION
     Route: 048
     Dates: start: 20051208, end: 20051212

REACTIONS (4)
  - ARRHYTHMIA [None]
  - CARDIAC OUTPUT DECREASED [None]
  - CONVULSION [None]
  - RESPIRATORY DISTRESS [None]
